FAERS Safety Report 7819890-5 (Version None)
Quarter: 2011Q4

REPORT INFORMATION
  Report Type: 
  Country: None (occurrence: None)
  Receive Date: 20111018
  Receipt Date: 20101130
  Transmission Date: 20120403
  Serious: No
  Sender: FDA-Public Use
  Company Number: US-ASTRAZENECA-2010SE56918

PATIENT
  Age: 75 Year
  Sex: Female

DRUGS (6)
  1. CLONAZEPAM [Concomitant]
  2. SYMBICORT [Suspect]
     Indication: ASTHMA
     Dosage: 80/4.5 MCG TWO PUFFS TWICE A DAY
     Route: 055
  3. POTASSIUM [Concomitant]
  4. ATENOLOL [Concomitant]
  5. TRIAMTERENE [Concomitant]
  6. MAXZIDE [Concomitant]

REACTIONS (4)
  - SALIVA DISCOLOURATION [None]
  - VOMITING [None]
  - NAUSEA [None]
  - THROAT IRRITATION [None]
